FAERS Safety Report 5242839-9 (Version None)
Quarter: 2007Q1

REPORT INFORMATION
  Report Type: 
  Country: None (occurrence: None)
  Receive Date: 20070221
  Receipt Date: 20070215
  Transmission Date: 20070707
  Serious: Yes (Hospitalization)
  Sender: FDA-Public Use
  Company Number: JP-MERCK-0702USA00904

PATIENT
  Age: 80 Year
  Sex: Female

DRUGS (4)
  1. FOSAMAX [Suspect]
     Indication: OSTEOPOROSIS
     Route: 048
     Dates: start: 20070101, end: 20070101
  2. AMLODIN [Concomitant]
     Route: 048
  3. D-ALPHA [Concomitant]
     Indication: OSTEOPOROSIS
     Route: 048
  4. SAWADARON [Concomitant]
     Indication: POLLAKIURIA
     Route: 048

REACTIONS (5)
  - ABDOMINAL PAIN [None]
  - ANOREXIA [None]
  - HEPATIC FUNCTION ABNORMAL [None]
  - JAUNDICE [None]
  - MALAISE [None]
